FAERS Safety Report 9375430 (Version 1)
Quarter: 2013Q2

REPORT INFORMATION
  Report Type: Report from Study
  Country: US (occurrence: US)
  Receive Date: 20130628
  Receipt Date: 20130628
  Transmission Date: 20140414
  Serious: Yes (Other)
  Sender: FDA-Public Use
  Company Number: US-GLAXOSMITHKLINE-A1020856B

PATIENT
  Age: 70 Year
  Sex: Female
  Weight: 103.9 kg

DRUGS (2)
  1. TRAMETINIB [Suspect]
     Indication: COLON CANCER
     Dosage: 2MG PER DAY
     Route: 048
     Dates: start: 20130405
  2. DABRAFENIB [Suspect]
     Indication: COLON CANCER
     Dosage: 150MG TWICE PER DAY
     Route: 048
     Dates: start: 20130405

REACTIONS (2)
  - Pyrexia [Recovered/Resolved]
  - Dizziness [Recovered/Resolved]
